FAERS Safety Report 21534438 (Version 1)
Quarter: 2022Q4

REPORT INFORMATION
  Report Type: Spontaneous
  Country: FR (occurrence: FR)
  Receive Date: 20221101
  Receipt Date: 20221101
  Transmission Date: 20230112
  Serious: Yes (Hospitalization)
  Sender: FDA-Public Use
  Company Number: FR-ELI_LILLY_AND_COMPANY-FR202210011709

PATIENT
  Age: 68 Year
  Sex: Male

DRUGS (1)
  1. BAQSIMI [Suspect]
     Active Substance: GLUCAGON
     Indication: Hypoglycaemia
     Dosage: UNK UNK, UNKNOWN
     Route: 065
     Dates: start: 20221020

REACTIONS (1)
  - Hypoglycaemia [Recovered/Resolved]
